FAERS Safety Report 13944144 (Version 1)
Quarter: 2017Q3

REPORT INFORMATION
  Report Type: Spontaneous
  Country: US (occurrence: US)
  Receive Date: 20170907
  Receipt Date: 20170907
  Transmission Date: 20171128
  Serious: Yes (Hospitalization)
  Sender: FDA-Public Use
  Company Number: US-ROCHE-1368547

PATIENT
  Sex: Male

DRUGS (3)
  1. TYLENOL [Concomitant]
     Active Substance: ACETAMINOPHEN
  2. RITUXAN [Suspect]
     Active Substance: RITUXIMAB
     Indication: DIFFUSE LARGE B-CELL LYMPHOMA
     Dosage: INFUSION RATE WAS STARTED AT 50 MG/HOUR AND THEN ESCALATED TO 100 MG/HOUR
     Route: 042
     Dates: start: 20131012
  3. LOVENOX [Concomitant]
     Active Substance: ENOXAPARIN SODIUM
     Indication: DEEP VEIN THROMBOSIS

REACTIONS (5)
  - Pyrexia [Recovered/Resolved]
  - Cerebrovascular accident [Not Recovered/Not Resolved]
  - Headache [Recovered/Resolved]
  - Cerebral haemorrhage [Not Recovered/Not Resolved]
  - Chills [Recovered/Resolved]
